FAERS Safety Report 4820051-2 (Version None)
Quarter: 2005Q4

REPORT INFORMATION
  Report Type: 
  Country: None (occurrence: None)
  Receive Date: 20051031
  Receipt Date: 20041215
  Transmission Date: 20060501
  Serious: Yes (Hospitalization)
  Sender: FDA-Public Use
  Company Number: 389480

PATIENT
  Sex: Female

DRUGS (1)
  1. ANAPROX [Suspect]
     Dosage: ORAL
     Route: 048

REACTIONS (7)
  - CONSTIPATION [None]
  - GLOSSODYNIA [None]
  - OROPHARYNGEAL SWELLING [None]
  - PAROSMIA [None]
  - STOMACH DISCOMFORT [None]
  - THROAT TIGHTNESS [None]
  - VOMITING [None]
